FAERS Safety Report 9520280 (Version 5)
Quarter: 2014Q2

REPORT INFORMATION
  Report Type: Spontaneous
  Country: US (occurrence: US)
  Receive Date: 20130912
  Receipt Date: 20140418
  Transmission Date: 20141212
  Serious: Yes (Life-Threatening, Hospitalization)
  Sender: FDA-Public Use
  Company Number: US-B.I. PHARMACEUTICALS,INC./RIDGEFIELD-2013-BI-28304BP

PATIENT
  Age: 86 Year
  Sex: Female
  Weight: 91 kg

DRUGS (5)
  1. PRADAXA [Suspect]
     Indication: ATRIAL FIBRILLATION
     Dosage: 150 MG
     Route: 048
     Dates: end: 20140214
  2. PRADAXA [Suspect]
     Dosage: 150 MG
     Route: 048
     Dates: start: 20140218
  3. METOPROLOL [Concomitant]
     Indication: HYPERTENSION
     Dosage: 50 MG
     Route: 065
     Dates: start: 1970
  4. FUROSEMIDE [Concomitant]
     Indication: FLUID RETENTION
     Dosage: 40 MG
     Route: 065
     Dates: start: 2010
  5. CALCIUM + VITAMIN D [Concomitant]
     Indication: NUTRITIONAL SUPPLEMENTATION
     Route: 065

REACTIONS (6)
  - Haemorrhoidal haemorrhage [Recovered/Resolved]
  - Rectal haemorrhage [Unknown]
  - Contusion [Unknown]
  - Dyspepsia [Not Recovered/Not Resolved]
  - Lip swelling [Unknown]
  - Rectal haemorrhage [Unknown]
